FAERS Safety Report 11054017 (Version 1)
Quarter: 2015Q2

REPORT INFORMATION
  Report Type: Spontaneous
  Country: BR (occurrence: BR)
  Receive Date: 20150422
  Receipt Date: 20150422
  Transmission Date: 20150821
  Serious: Yes (Hospitalization, Other)
  Sender: FDA-Public Use
  Company Number: BR-AMGEN-BRASP2015038252

PATIENT
  Age: 90 Year
  Sex: Female

DRUGS (11)
  1. SIMVASTATINE [Suspect]
     Active Substance: SIMVASTATIN
     Indication: PRODUCT USED FOR UNKNOWN INDICATION
     Dosage: 20 DF, UNK
     Route: 048
     Dates: start: 20141212
  2. ARTRODAR [Concomitant]
     Active Substance: DIACEREIN
     Indication: RHEUMATIC DISORDER
     Dosage: 500 DF, UNK
     Route: 048
  3. PROLIA [Suspect]
     Active Substance: DENOSUMAB
     Indication: OSTEOPOROSIS
     Dosage: UNK
     Route: 058
     Dates: start: 201408
  4. OMEPRAZOLE. [Concomitant]
     Active Substance: OMEPRAZOLE
     Indication: ABDOMINAL DISCOMFORT
     Dosage: 1 DF, UNK
     Route: 048
  5. SELOZOK [Suspect]
     Active Substance: METOPROLOL SUCCINATE
     Indication: MITRAL VALVE DISEASE
     Dosage: 25 MG, BID
     Route: 048
     Dates: start: 20141212
  6. DEPURA [Concomitant]
     Active Substance: CHOLECALCIFEROL
     Indication: MULTI-VITAMIN DEFICIENCY
     Dosage: 10 DF, QD
     Route: 048
     Dates: start: 2011
  7. XARELTO [Suspect]
     Active Substance: RIVAROXABAN
     Indication: THROMBOSIS PROPHYLAXIS
     Dosage: 10 DF, UNK
     Route: 048
     Dates: start: 20141212
  8. HYDROCHLOROTHIAZIDE. [Concomitant]
     Active Substance: HYDROCHLOROTHIAZIDE
     Indication: DIURETIC THERAPY
     Dosage: 25 DF, UNK
     Route: 048
     Dates: start: 20150319
  9. CONDROFLEX [Concomitant]
     Active Substance: CHONDROITIN SULFATE (BOVINE)\GLUCOSAMINE SULFATE
     Indication: RHEUMATIC DISORDER
     Dosage: 1 DF, QD
     Route: 048
  10. FUROSEMIDE. [Concomitant]
     Active Substance: FUROSEMIDE
     Indication: DIURETIC THERAPY
     Dosage: 2 DF, BID
     Route: 048
     Dates: start: 2000
  11. SPIRONOLACTONE. [Concomitant]
     Active Substance: SPIRONOLACTONE
     Indication: CARDIAC DISORDER
     Dosage: 25 DF, UNK
     Route: 048

REACTIONS (13)
  - Depressed level of consciousness [Unknown]
  - Blood pressure [Not Recovered/Not Resolved]
  - Mania [Not Recovered/Not Resolved]
  - Constipation [Not Recovered/Not Resolved]
  - Insomnia [Unknown]
  - Arthralgia [Not Recovered/Not Resolved]
  - Musculoskeletal pain [Not Recovered/Not Resolved]
  - Decreased appetite [Not Recovered/Not Resolved]
  - Delirium [Not Recovered/Not Resolved]
  - Weight decreased [Not Recovered/Not Resolved]
  - Respiratory disorder [Not Recovered/Not Resolved]
  - Anxiety [Not Recovered/Not Resolved]
  - Oedema peripheral [Not Recovered/Not Resolved]

NARRATIVE: CASE EVENT DATE: 20141212
